FAERS Safety Report 10175360 (Version 2)
Quarter: 2014Q2

REPORT INFORMATION
  Report Type: Spontaneous
  Country: US (occurrence: US)
  Receive Date: 20140515
  Receipt Date: 20140520
  Transmission Date: 20141212
  Serious: Yes (Death, Other)
  Sender: FDA-Public Use
  Company Number: US-BAXTER-2014BAX023539

PATIENT
  Sex: Female

DRUGS (2)
  1. DIANEAL LOW CALCIUM [Suspect]
     Indication: PERITONEAL DIALYSIS
     Route: 033
     Dates: end: 20140508
  2. EXTRANEAL [Suspect]
     Indication: PERITONEAL DIALYSIS
     Route: 033
     Dates: end: 20140508

REACTIONS (6)
  - Cardiac arrest [Fatal]
  - Urinary tract infection [Unknown]
  - Gastrointestinal infection [Unknown]
  - Fall [Unknown]
  - Gait disturbance [Unknown]
  - Unresponsive to stimuli [Unknown]
